FAERS Safety Report 4744994-3 (Version None)
Quarter: 2005Q3

REPORT INFORMATION
  Report Type: 
  Country: None (occurrence: None)
  Receive Date: 20050815
  Receipt Date: 20050809
  Transmission Date: 20060218
  Serious: Yes (Other)
  Sender: FDA-Public Use
  Company Number: GB-MERCK-0508GBR00061

PATIENT
  Age: 69 Year
  Sex: Male
  Weight: 70 kg

DRUGS (1)
  1. COZAAR [Suspect]
     Indication: BLOOD PRESSURE ABNORMAL
     Route: 048
     Dates: start: 20050719

REACTIONS (1)
  - BLOOD PRESSURE INCREASED [None]
